FAERS Safety Report 7081958-1 (Version None)
Quarter: 2010Q4

REPORT INFORMATION
  Report Type: 
  Country: None (occurrence: None)
  Receive Date: 20101103
  Receipt Date: 20101029
  Transmission Date: 20110411
  Serious: Yes (Other)
  Sender: FDA-Public Use
  Company Number: BR-PFIZER INC-2010125294

PATIENT
  Age: 64 Year
  Sex: Male
  Weight: 74 kg

DRUGS (6)
  1. CHAMPIX [Suspect]
     Indication: TOBACCO ABUSE
     Dosage: 0.5 MG, UNK
     Route: 048
     Dates: start: 20100923
  2. CHAMPIX [Suspect]
     Dosage: 1 MG, UNK
     Dates: start: 20101004
  3. ACETYLCYSTEINE [Concomitant]
     Indication: CHRONIC OBSTRUCTIVE PULMONARY DISEASE
     Dosage: UNK
  4. ACETYLCYSTEINE [Concomitant]
     Indication: EMPHYSEMA
  5. AMOXICILLIN AND CLAVULANATE POTASSIUM [Concomitant]
     Indication: CHRONIC OBSTRUCTIVE PULMONARY DISEASE
     Dosage: UNK
  6. AMOXICILLIN AND CLAVULANATE POTASSIUM [Concomitant]
     Indication: EMPHYSEMA

REACTIONS (6)
  - AGGRESSION [None]
  - ANXIETY [None]
  - EMOTIONAL DISTRESS [None]
  - IRRITABILITY [None]
  - SOMNOLENCE [None]
  - WEIGHT INCREASED [None]
